FAERS Safety Report 9675513 (Version 3)
Quarter: 2014Q1

REPORT INFORMATION
  Report Type: Spontaneous
  Country: US (occurrence: US)
  Receive Date: 20131107
  Receipt Date: 20140116
  Transmission Date: 20141002
  Serious: Yes (Death, Other)
  Sender: FDA-Public Use
  Company Number: US-SA-2013SA113389

PATIENT
  Age: 48 Year
  Sex: Female

DRUGS (1)
  1. LOVENOX [Suspect]
     Route: 065
     Dates: start: 20121008, end: 20121107

REACTIONS (4)
  - Multi-organ failure [Fatal]
  - Metastatic neoplasm [Fatal]
  - Ovarian cancer [Unknown]
  - Malaise [Unknown]
